FAERS Safety Report 23580122 (Version 1)
Quarter: 2024Q1

REPORT INFORMATION
  Report Type: Spontaneous
  Country: DK (occurrence: DK)
  Receive Date: 20240229
  Receipt Date: 20240229
  Transmission Date: 20240409
  Serious: Yes (Other)
  Sender: FDA-Public Use
  Company Number: None

PATIENT
  Age: 57 Year
  Sex: Female

DRUGS (3)
  1. CLOZAPINE [Suspect]
     Active Substance: CLOZAPINE
     Indication: Psychotic disorder
     Dosage: STRENGTH: UNKNOWN. DOSE: UNKNOWN.
     Route: 048
  2. TRILAFON [Suspect]
     Active Substance: PERPHENAZINE
     Indication: Mental disorder
     Dosage: UNK
     Route: 065
     Dates: start: 1987, end: 2000
  3. LYRICA [Concomitant]
     Active Substance: PREGABALIN
     Indication: Schizophrenia
     Dosage: UNK
     Route: 065
     Dates: start: 200712, end: 200803

REACTIONS (7)
  - Depressed mood [Not Recovered/Not Resolved]
  - Balance disorder [Not Recovered/Not Resolved]
  - Angina pectoris [Unknown]
  - Myalgia [Not Recovered/Not Resolved]
  - Type 2 diabetes mellitus [Not Recovered/Not Resolved]
  - Constipation [Recovered/Resolved]
  - Deep vein thrombosis [Recovered/Resolved]

NARRATIVE: CASE EVENT DATE: 20130101
